FAERS Safety Report 19877465 (Version 1)
Quarter: 2021Q3

REPORT INFORMATION
  Report Type: Spontaneous
  Country: US (occurrence: US)
  Receive Date: 20210922
  Receipt Date: 20210922
  Transmission Date: 20211014
  Serious: No
  Sender: FDA-Public Use
  Company Number: None

PATIENT

DRUGS (3)
  1. VALSARTAN. [Suspect]
     Active Substance: VALSARTAN
  2. GABAPENTIN. [Suspect]
     Active Substance: GABAPENTIN
  3. OXYBUTYNIN. [Suspect]
     Active Substance: OXYBUTYNIN CHLORIDE

REACTIONS (4)
  - Wrong product administered [None]
  - Somnolence [None]
  - Feeling jittery [None]
  - Drug dispensed to wrong patient [None]
